FAERS Safety Report 18064838 (Version 1)
Quarter: 2020Q3

REPORT INFORMATION
  Report Type: Spontaneous
  Country: DE (occurrence: DE)
  Receive Date: 20200724
  Receipt Date: 20200724
  Transmission Date: 20201103
  Serious: Yes (Hospitalization, Other)
  Sender: FDA-Public Use
  Company Number: DE-SUN PHARMACEUTICAL INDUSTRIES LTD-13SUNBA01P

PATIENT
  Age: 15 Year
  Sex: Male
  Weight: 70 kg

DRUGS (1)
  1. BACLOFEN. [Suspect]
     Active Substance: BACLOFEN
     Indication: PRODUCT USED FOR UNKNOWN INDICATION
     Dosage: 90 PILLS (25 MG EACH; MAX. POTENTIAL DOSE 2250MG)
     Route: 065

REACTIONS (7)
  - Cyanosis [Recovering/Resolving]
  - Bradypnoea [Recovering/Resolving]
  - Coma [Recovering/Resolving]
  - Overdose [Unknown]
  - Status epilepticus [Recovering/Resolving]
  - Generalised tonic-clonic seizure [Recovered/Resolved]
  - Blood creatine phosphokinase increased [Recovered/Resolved]
